FAERS Safety Report 5369750-7 (Version None)
Quarter: 2007Q2

REPORT INFORMATION
  Report Type: 
  Country: None (occurrence: None)
  Receive Date: 20070625
  Receipt Date: 20070619
  Transmission Date: 20071010
  Serious: Yes (Other)
  Sender: FDA-Public Use
  Company Number: US-GILEAD-2006-0009490

PATIENT
  Sex: Male

DRUGS (8)
  1. EMTRICITABINE/TENOFOVIR DISOPROXIL FUMARATE [Suspect]
     Indication: HIV INFECTION
     Route: 048
     Dates: start: 20060303, end: 20060330
  2. KALETRA [Suspect]
     Indication: HIV INFECTION
     Dates: start: 20060303, end: 20060330
  3. PLACEBO [Concomitant]
     Indication: HIV INFECTION
     Dates: start: 20060303, end: 20060330
  4. FRUSEMIDE [Concomitant]
  5. AMLODIPINE [Concomitant]
  6. LISINOPRIL [Concomitant]
  7. CARVEDILOL [Concomitant]
  8. ISOSORBIDE DINITRATE [Concomitant]

REACTIONS (2)
  - CARDIAC FAILURE CONGESTIVE [None]
  - RENAL FAILURE [None]
